FAERS Safety Report 7817448-5 (Version None)
Quarter: 2011Q4

REPORT INFORMATION
  Report Type: 
  Country: None (occurrence: None)
  Receive Date: 20111017
  Receipt Date: 20111006
  Transmission Date: 20120403
  Serious: Yes (Other)
  Sender: FDA-Public Use
  Company Number: US-US-EMD SERONO, INC.-7087989

PATIENT
  Sex: Female

DRUGS (1)
  1. REBIF [Suspect]
     Indication: PRODUCT USED FOR UNKNOWN INDICATION
     Route: 058
     Dates: start: 20040828

REACTIONS (8)
  - FATIGUE [None]
  - INJECTION SITE DISCOMFORT [None]
  - BLOOD IRON DECREASED [None]
  - GAIT DISTURBANCE [None]
  - TYPE 2 DIABETES MELLITUS [None]
  - BALANCE DISORDER [None]
  - MUSCLE SPASMS [None]
  - INJECTION SITE ERYTHEMA [None]
